FAERS Safety Report 4897770-5 (Version None)
Quarter: 2006Q1

REPORT INFORMATION
  Report Type: 
  Country: None (occurrence: None)
  Receive Date: 20060130
  Receipt Date: 20060130
  Transmission Date: 20060701
  Serious: Yes (Death)
  Sender: FDA-Public Use
  Company Number: None

PATIENT
  Age: 59 Year
  Sex: Male
  Weight: 90.7194 kg

DRUGS (1)
  1. LIPITOR [Suspect]
     Indication: BLOOD CHOLESTEROL INCREASED
     Dosage: 40 MG DAILY PO
     Route: 048

REACTIONS (6)
  - ASTHENIA [None]
  - CARDIOMYOPATHY [None]
  - CORONARY ARTERY SURGERY [None]
  - MYALGIA [None]
  - PAIN IN EXTREMITY [None]
  - SUDDEN CARDIAC DEATH [None]
